FAERS Safety Report 8203938-2 (Version None)
Quarter: 2012Q1

REPORT INFORMATION
  Report Type: 
  Country: None (occurrence: None)
  Receive Date: 20120313
  Receipt Date: 20120305
  Transmission Date: 20120608
  Serious: Yes (Other)
  Sender: FDA-Public Use
  Company Number: US-US-EMD SERONO, INC.-7117367

PATIENT
  Sex: Female

DRUGS (1)
  1. REBIF [Suspect]
     Indication: PRODUCT USED FOR UNKNOWN INDICATION
     Route: 058
     Dates: start: 20100808

REACTIONS (4)
  - INFLUENZA LIKE ILLNESS [None]
  - CENTRAL NERVOUS SYSTEM LESION [None]
  - INJECTION SITE ERYTHEMA [None]
  - OPTIC NEURITIS [None]
